FAERS Safety Report 7414589-1 (Version None)
Quarter: 2011Q2

REPORT INFORMATION
  Report Type: 
  Country: None (occurrence: None)
  Receive Date: 20110414
  Receipt Date: 20110408
  Transmission Date: 20111010
  Serious: Yes (Hospitalization, Other)
  Sender: FDA-Public Use
  Company Number: US-BRISTOL-MYERS SQUIBB COMPANY-15661846

PATIENT
  Age: 70 Year
  Sex: Female

DRUGS (13)
  1. DARBEPOETIN ALFA [Concomitant]
     Dates: start: 20100108
  2. FAMOTIDINE [Concomitant]
     Dates: start: 20100108
  3. DEXAMETHASONE [Suspect]
     Indication: MULTIPLE MYELOMA
     Dosage: 25OCT10-04NOV10;20MG;DAY 8,11,15,18, EVERY 3 WEEKS(ORAL)
     Route: 042
     Dates: start: 20101123, end: 20101127
  4. ZOLEDRONIC ACID [Concomitant]
     Dates: start: 20090101
  5. CISPLATIN [Suspect]
     Indication: MULTIPLE MYELOMA
     Route: 042
     Dates: start: 20101123, end: 20101126
  6. ETOPOSIDE [Suspect]
     Indication: MULTIPLE MYELOMA
     Route: 042
     Dates: start: 20101123, end: 20101126
  7. LIDOCAINE [Concomitant]
     Dates: start: 20101018
  8. PROCHLORPERAZINE TAB [Concomitant]
     Dates: start: 20100108
  9. OXYCODONE [Concomitant]
     Dates: start: 20101025
  10. CYCLOPHOSPHAMIDE [Suspect]
     Indication: MULTIPLE MYELOMA
     Route: 042
     Dates: start: 20101123, end: 20101126
  11. ACYCLOVIR [Concomitant]
     Dates: start: 20100108
  12. BORTEZOMIB [Concomitant]
     Indication: MULTIPLE MYELOMA
     Dosage: DAY 8,11,15,18, EVERY 3 WEEKS
     Route: 042
     Dates: start: 20101025, end: 20101104
  13. FLUCONAZOLE [Concomitant]
     Dates: start: 20100108

REACTIONS (4)
  - PNEUMONIA [None]
  - PANCYTOPENIA [None]
  - ASTHENIA [None]
  - CONFUSIONAL STATE [None]
